FAERS Safety Report 10592300 (Version 1)
Quarter: 2014Q4

REPORT INFORMATION
  Report Type: Not Available
  Country: FR (occurrence: FR)
  Receive Date: 20141119
  Receipt Date: 20141119
  Transmission Date: 20150529
  Serious: Yes (Hospitalization)
  Sender: FDA-Public Use
  Company Number: FR-BEH-2014046375

PATIENT
  Age: 64 Year
  Sex: Female

DRUGS (7)
  1. DOLIPRANE [Concomitant]
     Active Substance: ACETAMINOPHEN
     Dosage: 1000 MG ON DEMAND LONG TERM THERAPY; 1 G: 3 TABLETS/DAY IF PAIN
  2. PLAQUENIL [Concomitant]
     Active Substance: HYDROXYCHLOROQUINE SULFATE
     Dosage: 200 MG TABLET LONG TERM THERAPY; 2 TABLETS/DAY
  3. PRIVIGEN [Suspect]
     Active Substance: HUMAN IMMUNOGLOBULIN G
     Indication: DERMATOMYOSITIS
     Dosage: 140 G; DIVIDED INTO 30 G, 50 G, 40 G AND 20 G
     Route: 042
     Dates: start: 20141003, end: 20141006
  4. ATARAX [Concomitant]
     Active Substance: HYDROXYZINE\HYDROXYZINE HYDROCHLORIDE
     Dosage: LONG TERM THERAPY; 50 MG; 1 TABLET/DAY
  5. IMOVANE [Concomitant]
     Active Substance: ZOPICLONE
     Dosage: 7.5 MG TABLET LONG TERM THERAPY; 1 TABLET/DAY
  6. MONOCLONAL ANTIBODIES [Suspect]
     Active Substance: UNSPECIFIED INGREDIENT
     Indication: BONE DECALCIFICATION
     Dosage: 60 MG SOLUTION FOR INJECTION
     Route: 058
     Dates: start: 20140903, end: 20140903
  7. CORTANCYL [Concomitant]
     Active Substance: PREDNISONE
     Dosage: 20 MG TABLET LONG TERM THERAPY; 1 TABLET/DAY

REACTIONS (7)
  - Hemianopia [Unknown]
  - Cerebral haematoma [Recovering/Resolving]
  - Anaemia [Recovered/Resolved]
  - Intracranial pressure increased [Unknown]
  - Headache [Recovered/Resolved]
  - Headache [Not Recovered/Not Resolved]
  - Thrombocytopenia [Recovered/Resolved]

NARRATIVE: CASE EVENT DATE: 201410
